FAERS Safety Report 7488167-2 (Version None)
Quarter: 2011Q2

REPORT INFORMATION
  Report Type: 
  Country: None (occurrence: None)
  Receive Date: 20110518
  Receipt Date: 20110509
  Transmission Date: 20111010
  Serious: Yes (Disabling)
  Sender: FDA-Public Use
  Company Number: JP-ASTRAZENECA-2011SE25068

PATIENT
  Age: 60 Year
  Sex: Female
  Weight: 53 kg

DRUGS (3)
  1. SAIREI-TO [Suspect]
     Route: 048
     Dates: end: 20110407
  2. CRESTOR [Suspect]
     Indication: HYPERCHOLESTEROLAEMIA
     Route: 048
     Dates: start: 20110316, end: 20110407
  3. ADETPHOS [Suspect]
     Route: 048
     Dates: end: 20110407

REACTIONS (5)
  - BACK PAIN [None]
  - NEUTROPHIL COUNT DECREASED [None]
  - PYREXIA [None]
  - PLATELET COUNT DECREASED [None]
  - WHITE BLOOD CELL COUNT DECREASED [None]
